FAERS Safety Report 18661073 (Version 2)
Quarter: 2021Q1

REPORT INFORMATION
  Report Type: Spontaneous
  Country: US (occurrence: US)
  Receive Date: 20201224
  Receipt Date: 20210209
  Transmission Date: 20210419
  Serious: Yes (Hospitalization)
  Sender: FDA-Public Use
  Company Number: US-VERTEX PHARMACEUTICALS-2020-025340

PATIENT
  Sex: Female
  Weight: 36.1 kg

DRUGS (6)
  1. TOBI [Concomitant]
     Active Substance: TOBRAMYCIN
  2. CAYSTON [Concomitant]
     Active Substance: AZTREONAM
  3. SYMDEKO [Suspect]
     Active Substance: IVACAFTOR\TEZACAFTOR
     Indication: CYSTIC FIBROSIS
     Dosage: 1 DOSAGE FORM, BID (1 YELLOW TABLET IN THE MORNING AND 1 BLUE TABLET IN THE EVENING)
     Route: 048
  4. PULMOSAL [Concomitant]
     Active Substance: SODIUM CHLORIDE
  5. ZOSYN [Suspect]
     Active Substance: PIPERACILLIN SODIUM\TAZOBACTAM SODIUM
     Route: 065
  6. PULMOZYME [Concomitant]
     Active Substance: DORNASE ALFA

REACTIONS (6)
  - Dyspnoea [Unknown]
  - Cough [Unknown]
  - Cystic fibrosis related diabetes [Unknown]
  - Drug hypersensitivity [Unknown]
  - Device related infection [Unknown]
  - Hepatic cyst [Unknown]

NARRATIVE: CASE EVENT DATE: 2020
